FAERS Safety Report 5217725-0 (Version None)
Quarter: 2007Q1

REPORT INFORMATION
  Report Type: 
  Country: None (occurrence: None)
  Receive Date: 20070124
  Receipt Date: 20070119
  Transmission Date: 20070707
  Serious: Yes (Death)
  Sender: FDA-Public Use
  Company Number: IT-JNJFOC-20070105228

PATIENT
  Age: 73 Year
  Sex: Female

DRUGS (5)
  1. CAELYX [Suspect]
     Indication: NEOPLASM PROPHYLAXIS
     Route: 042
  2. CARBOPLATIN [Suspect]
     Indication: NEOPLASM PROPHYLAXIS
     Route: 042
  3. DECADRON [Concomitant]
  4. KYTRIL [Concomitant]
  5. ZANTAC [Concomitant]

REACTIONS (1)
  - LEUKOPENIA [None]
